FAERS Safety Report 7968957-X (Version None)
Quarter: 2011Q4

REPORT INFORMATION
  Report Type: 
  Country: None (occurrence: None)
  Receive Date: 20111209
  Receipt Date: 20111208
  Transmission Date: 20120403
  Serious: Yes (Death, Other)
  Sender: FDA-Public Use
  Company Number: LT-BAYER-2011-113230

PATIENT
  Age: -1 Year
  Sex: Female

DRUGS (7)
  1. NOREPINEPHRINE BITARTRATE [Concomitant]
     Indication: HAEMODYNAMIC INSTABILITY
  2. DOPAMINE HCL [Concomitant]
     Indication: HAEMODYNAMIC INSTABILITY
  3. MEROPENEM [Concomitant]
     Indication: ANTIBIOTIC THERAPY
  4. I.V. SOLUTIONS [Concomitant]
     Indication: HAEMODYNAMIC INSTABILITY
  5. CIPROFLOXACIN [Suspect]
     Indication: ANTIBIOTIC THERAPY
  6. GENTAMICIN [Suspect]
     Indication: ANTIBIOTIC THERAPY
  7. VANCOMYCIN [Suspect]
     Indication: ANTIBIOTIC THERAPY

REACTIONS (2)
  - MULTI-ORGAN FAILURE [None]
  - DISSEMINATED INTRAVASCULAR COAGULATION [None]
